FAERS Safety Report 8231435-7 (Version None)
Quarter: 2012Q1

REPORT INFORMATION
  Report Type: 
  Country: None (occurrence: None)
  Receive Date: 20120320
  Receipt Date: 20120309
  Transmission Date: 20120608
  Serious: Yes (Death, Hospitalization, Other)
  Sender: FDA-Public Use
  Company Number: DSJ-2012-04642

PATIENT
  Sex: Female

DRUGS (1)
  1. AMLODIPINE BESYLATE AND OLMESARTAN MEDOXOMIL [Suspect]
     Indication: HYPERTENSION
     Dosage: 40/5 MG (1 IN 1 D), PER ORAL
     Route: 048

REACTIONS (4)
  - METASTASIS [None]
  - BREAST CANCER FEMALE [None]
  - HEPATIC FAILURE [None]
  - HEPATIC NEOPLASM [None]
